FAERS Safety Report 9093224 (Version 1)
Quarter: 2013Q1

REPORT INFORMATION
  Report Type: Report from Study
  Country: US (occurrence: US)
  Receive Date: 20130201
  Receipt Date: 20130201
  Transmission Date: 20140127
  Serious: Yes (Hospitalization)
  Sender: FDA-Public Use
  Company Number: US-ROCHE-1183399

PATIENT
  Age: 64 Year
  Sex: Female

DRUGS (9)
  1. MYCOPHENOLATE MOFETIL [Suspect]
     Indication: PRODUCT USED FOR UNKNOWN INDICATION
     Route: 065
     Dates: start: 20120928
  2. SIROLIMUS [Suspect]
     Indication: PRODUCT USED FOR UNKNOWN INDICATION
     Route: 065
     Dates: start: 20120927
  3. FLUCONAZOLE [Concomitant]
  4. SIMVAHEXAL [Concomitant]
     Indication: HYPERCHOLESTEROLAEMIA
  5. DIGIMERCK [Concomitant]
     Indication: CARDIAC FAILURE
  6. NEXIUM [Concomitant]
  7. PREDNISOLONE [Concomitant]
  8. FOLIC ACID [Concomitant]
  9. FENTANYL [Concomitant]

REACTIONS (1)
  - Graft versus host disease [Unknown]
